FAERS Safety Report 22703506 (Version 2)
Quarter: 2023Q4

REPORT INFORMATION
  Report Type: Spontaneous
  Country: JP (occurrence: JP)
  Receive Date: 20230713
  Receipt Date: 20231013
  Transmission Date: 20240109
  Serious: Yes (Other)
  Sender: FDA-Public Use
  Company Number: JP-Vifor (International) Inc.-VIT-2023-05101

PATIENT
  Age: 73 Year
  Sex: Female

DRUGS (14)
  1. TAVNEOS [Suspect]
     Active Substance: AVACOPAN
     Indication: Granulomatosis with polyangiitis
     Dosage: 30 MILLIGRAM, QD
     Route: 048
     Dates: start: 20221125
  2. PREDNISOLONE [Concomitant]
     Active Substance: PREDNISOLONE
     Indication: Granulomatosis with polyangiitis
     Dosage: PERORAL MEDICINE
     Route: 048
  3. PREDNISOLONE [Concomitant]
     Active Substance: PREDNISOLONE
     Dosage: PERORAL MEDICINE
     Route: 048
  4. PREDNISOLONE [Concomitant]
     Active Substance: PREDNISOLONE
     Dosage: PERORAL MEDICINE
     Route: 048
  5. SULFAMETHOXAZOLE\TRIMETHOPRIM [Concomitant]
     Active Substance: SULFAMETHOXAZOLE\TRIMETHOPRIM
     Indication: Antifungal prophylaxis
     Dosage: PERORAL MEDICINE
     Route: 048
  6. VONOPRAZAN FUMARATE [Concomitant]
     Active Substance: VONOPRAZAN FUMARATE
     Dosage: PER ORAL MEDICINE
     Route: 048
  7. OLMESARTAN [Concomitant]
     Active Substance: OLMESARTAN
     Dosage: PERORAL MEDICINE
     Route: 048
  8. ROSUVASTATIN [Concomitant]
     Active Substance: ROSUVASTATIN
     Dosage: PER ORAL MEDICINE
     Route: 048
  9. EZETIMIBE [Concomitant]
     Active Substance: EZETIMIBE
     Dosage: PER ORAL MEDICINE
     Route: 048
  10. ALENDRONATE [Concomitant]
     Active Substance: ALENDRONATE SODIUM
     Dosage: UNK
     Route: 048
  11. ELDECALCITOL [Concomitant]
     Active Substance: ELDECALCITOL
     Dosage: UNK
     Route: 048
  12. EPALRESTAT [Concomitant]
     Active Substance: EPALRESTAT
     Dosage: UNK
     Route: 048
  13. LINZESS [Concomitant]
     Active Substance: LINACLOTIDE
     Dosage: UNK
     Route: 048
  14. MAGNESIUM OXIDE [Concomitant]
     Active Substance: MAGNESIUM OXIDE
     Dosage: PERORAL MEDICINE
     Route: 048

REACTIONS (2)
  - Diabetes mellitus [Not Recovered/Not Resolved]
  - Hepatic function abnormal [Not Recovered/Not Resolved]

NARRATIVE: CASE EVENT DATE: 20221125
